FAERS Safety Report 9441876 (Version 1)
Quarter: 2013Q3

REPORT INFORMATION
  Report Type: Spontaneous
  Country: SE (occurrence: None)
  Receive Date: 20130801
  Receipt Date: 20130801
  Transmission Date: 20140515
  Serious: Yes (Hospitalization)
  Sender: FDA-Public Use
  Company Number: IMP_06777_2013

PATIENT
  Age: 66 Year
  Sex: Male

DRUGS (1)
  1. METFORMIN [Suspect]
     Indication: DIABETES MELLITUS

REACTIONS (12)
  - Shock [None]
  - Dyspnoea [None]
  - Back pain [None]
  - Loss of consciousness [None]
  - Toxicity to various agents [None]
  - Blood pressure increased [None]
  - Nausea [None]
  - Vomiting [None]
  - Blood pH decreased [None]
  - Oliguria [None]
  - Blood creatinine increased [None]
  - Fatigue [None]
